FAERS Safety Report 15809296 (Version 1)
Quarter: 2019Q1

REPORT INFORMATION
  Report Type: Report from Study
  Country: None (occurrence: CA)
  Receive Date: 20190110
  Receipt Date: 20190110
  Transmission Date: 20190417
  Serious: Yes (Death, Hospitalization, Other)
  Sender: FDA-Public Use
  Company Number: CA-ABBVIE-18K-028-2561333-00

PATIENT
  Sex: Male

DRUGS (1)
  1. HUMIRA [Suspect]
     Active Substance: ADALIMUMAB
     Indication: CROHN^S DISEASE
     Route: 058
     Dates: start: 20170524, end: 2018

REACTIONS (4)
  - Cardiac arrest [Fatal]
  - Tuberculosis [Not Recovered/Not Resolved]
  - Malaise [Fatal]
  - Pulmonary embolism [Fatal]

NARRATIVE: CASE EVENT DATE: 2018
